FAERS Safety Report 8909334 (Version 3)
Quarter: 2013Q2

REPORT INFORMATION
  Report Type: Spontaneous
  Country: US (occurrence: US)
  Receive Date: 20121115
  Receipt Date: 20130430
  Transmission Date: 20140414
  Serious: Yes (Disabling)
  Sender: FDA-Public Use
  Company Number: US-009507513-1211USA002337

PATIENT
  Sex: Male

DRUGS (1)
  1. JANUVIA [Suspect]
     Indication: TYPE 2 DIABETES MELLITUS
     Dosage: UNK

REACTIONS (7)
  - Diabetic neuropathy [Unknown]
  - Blood glucose abnormal [Unknown]
  - Blood cholesterol decreased [Unknown]
  - Depression [Unknown]
  - Hypotension [Unknown]
  - Sleep disorder [Unknown]
  - Drug dose omission [Unknown]
